FAERS Safety Report 10032294 (Version 1)
Quarter: 2014Q1

REPORT INFORMATION
  Report Type: Not Available
  Country: ES (occurrence: ES)
  Receive Date: 20140324
  Receipt Date: 20140324
  Transmission Date: 20141002
  Serious: Yes (Death, Life-Threatening, Hospitalization)
  Sender: FDA-Public Use
  Company Number: ES-NAPPMUNDI-DEU-2014-0013960

PATIENT
  Age: 78 Year
  Sex: Male

DRUGS (1)
  1. MORPHINE SULFATE [Suspect]
     Indication: PRODUCT USED FOR UNKNOWN INDICATION
     Dosage: UNK MG, UNK
     Route: 048
     Dates: start: 201306, end: 201306

REACTIONS (4)
  - Respiratory tract infection [Fatal]
  - Septic shock [Fatal]
  - Overdose [Fatal]
  - Somnolence [Recovering/Resolving]
